FAERS Safety Report 15701016 (Version 6)
Quarter: 2021Q1

REPORT INFORMATION
  Report Type: Spontaneous
  Country: CZ (occurrence: CZ)
  Receive Date: 20181207
  Receipt Date: 20210322
  Transmission Date: 20210419
  Serious: Yes (Life-Threatening, Hospitalization, Other)
  Sender: FDA-Public Use
  Company Number: PHHY2018CZ174983

PATIENT
  Age: 9 Year
  Sex: Female
  Weight: 30 kg

DRUGS (11)
  1. LINEZOLID. [Suspect]
     Active Substance: LINEZOLID
     Indication: PLEURAL FIBROSIS
     Dosage: 2430 MG, QD (810 MG/DAY DIVIDED INTO 3 DAILY DOSES)
     Route: 042
  2. LINEZOLID. [Suspect]
     Active Substance: LINEZOLID
     Indication: MYCOBACTERIAL INFECTION
  3. SIROLIMUS. [Concomitant]
     Active Substance: SIROLIMUS
     Indication: PRODUCT USED FOR UNKNOWN INDICATION
     Dosage: UNK
     Route: 065
  4. VALACICLOVIR [Concomitant]
     Active Substance: VALACYCLOVIR HYDROCHLORIDE
     Indication: PRODUCT USED FOR UNKNOWN INDICATION
     Dosage: 500 MG, QD
     Route: 065
  5. POSACONAZOLE [Concomitant]
     Active Substance: POSACONAZOLE
     Indication: PRODUCT USED FOR UNKNOWN INDICATION
     Dosage: 336 MG, QD IN 3 DAILY DOSES
     Route: 065
  6. PREDNISONE. [Concomitant]
     Active Substance: PREDNISONE
     Indication: PRODUCT USED FOR UNKNOWN INDICATION
     Dosage: 0.67 MG/KG, QD
     Route: 065
  7. LINEZOLID. [Suspect]
     Active Substance: LINEZOLID
     Indication: MYCOBACTERIUM ABSCESSUS INFECTION
     Dosage: UNK
     Route: 042
  8. AMIKACIN. [Concomitant]
     Active Substance: AMIKACIN
     Indication: PRODUCT USED FOR UNKNOWN INDICATION
     Dosage: 800 MG, QD IN 2 DAILY DOSES
     Route: 065
  9. BUDESONIDE. [Concomitant]
     Active Substance: BUDESONIDE
     Indication: PRODUCT USED FOR UNKNOWN INDICATION
     Dosage: 0.3 MG/KG, QD
     Route: 065
  10. MEROPENEM. [Concomitant]
     Active Substance: MEROPENEM
     Indication: PRODUCT USED FOR UNKNOWN INDICATION
     Dosage: 9 G, QD (3 G/DAY IN 3 DAILY DOSES)
     Route: 065
  11. PREDNISONE. [Concomitant]
     Active Substance: PREDNISONE
     Dosage: 1.67 MG/KG, QD
     Route: 065

REACTIONS (15)
  - Nausea [Unknown]
  - Off label use [Unknown]
  - Antibiotic level above therapeutic [Recovered/Resolved]
  - Product use issue [Unknown]
  - Toxicity to various agents [Unknown]
  - Kussmaul respiration [Recovered/Resolved]
  - Myelosuppression [Unknown]
  - Lactic acidosis [Recovered/Resolved]
  - Neuropathy peripheral [Unknown]
  - Vomiting [Recovered/Resolved]
  - Cognitive disorder [Unknown]
  - Mitochondrial cytopathy [Unknown]
  - Alanine aminotransferase increased [Unknown]
  - Altered state of consciousness [Recovered/Resolved]
  - Product use in unapproved indication [Unknown]
